FAERS Safety Report 8857573 (Version 1)
Quarter: 2012Q4

REPORT INFORMATION
  Report Type: 
  Country: US (occurrence: US)
  Receive Date: 20121024
  Receipt Date: 20121024
  Transmission Date: 20130627
  Serious: Yes (Life-Threatening, Hospitalization)
  Sender: FDA-Public Use
  Company Number: US-TEVA-366282USA

PATIENT
  Sex: Female

DRUGS (1)
  1. TREANDA [Suspect]

REACTIONS (1)
  - Stevens-Johnson syndrome [Not Recovered/Not Resolved]
